FAERS Safety Report 7961303-7 (Version None)
Quarter: 2011Q4

REPORT INFORMATION
  Report Type: 
  Country: None (occurrence: None)
  Receive Date: 20111201
  Receipt Date: 20111201
  Transmission Date: 20120403
  Serious: Yes (Other)
  Sender: FDA-Public Use
  Company Number: None

PATIENT
  Sex: Female

DRUGS (15)
  1. COMPAZINE [Concomitant]
  2. GLYBURIDE [Concomitant]
  3. VITAMIN B6 [Concomitant]
  4. RAD001 EVEROLIMUS [Suspect]
     Indication: COLORECTAL CANCER
     Dosage: 5 MG PO QD
     Route: 048
     Dates: start: 20110309
  5. CELEBREX [Concomitant]
  6. NORVASC [Concomitant]
  7. ATENOLOL [Concomitant]
  8. SIMVASTATIN [Concomitant]
  9. VALSARTAN/TESSALON PERLES [Concomitant]
  10. LOVENOX [Concomitant]
  11. OXYBUTYNIN [Concomitant]
  12. AV-951 TIVOZANIB [Suspect]
     Indication: COLORECTAL CANCER
     Dosage: 0.5 MG PO QD
     Route: 048
     Dates: start: 20110309
  13. BACTROBAN [Concomitant]
  14. ISOSOBIDE [Concomitant]
  15. PROTONIX [Concomitant]

REACTIONS (9)
  - SKIN MASS [None]
  - RASH [None]
  - CONTUSION [None]
  - PAIN OF SKIN [None]
  - SKIN LESION [None]
  - ISCHAEMIA [None]
  - HAEMATOMA [None]
  - HAEMORRHAGE [None]
  - PLATELET COUNT DECREASED [None]
